FAERS Safety Report 5741133-7 (Version None)
Quarter: 2008Q2

REPORT INFORMATION
  Report Type: 
  Country: None (occurrence: None)
  Receive Date: 20080516
  Receipt Date: 20080508
  Transmission Date: 20081010
  Serious: Yes (Other)
  Sender: FDA-Public Use
  Company Number: US-PFIZER INC-2008040311

PATIENT
  Sex: Female
  Weight: 67.727 kg

DRUGS (10)
  1. CELEBREX [Suspect]
     Indication: ARTHRITIS
  2. CELEBREX [Suspect]
     Indication: OSTEOPOROSIS
  3. ACETYLSALICYLIC ACID SRT [Concomitant]
  4. VYTORIN [Concomitant]
  5. CARVEDILOL [Concomitant]
  6. LISINOPRIL [Concomitant]
  7. GLIMEPIRIDE [Concomitant]
  8. LEVOTHYROXINE SODIUM [Concomitant]
  9. FEXOFENADINE [Concomitant]
  10. EZETIMIBE [Concomitant]

REACTIONS (5)
  - BLINDNESS [None]
  - CARDIAC FAILURE [None]
  - GASTRIC DISORDER [None]
  - HEART VALVE INCOMPETENCE [None]
  - WEIGHT DECREASED [None]
